FAERS Safety Report 14364375 (Version 1)
Quarter: 2018Q1

REPORT INFORMATION
  Report Type: Spontaneous
  Country: US (occurrence: US)
  Receive Date: 20180106
  Receipt Date: 20180106
  Transmission Date: 20180509
  Serious: Yes (Hospitalization)
  Sender: FDA-Public Use
  Company Number: None

PATIENT
  Age: 60 Year
  Sex: Male
  Weight: 85.9 kg

DRUGS (2)
  1. BEVACIZUMAB (RHUMAB VEGF) [Suspect]
     Active Substance: BEVACIZUMAB
     Dates: end: 20171031
  2. DEXAMETHASONE. [Suspect]
     Active Substance: DEXAMETHASONE
     Dates: end: 20171104

REACTIONS (8)
  - Headache [None]
  - Lung consolidation [None]
  - Staphylococcal infection [None]
  - Pyrexia [None]
  - Chest X-ray abnormal [None]
  - Pneumonia [None]
  - Tuberculin test positive [None]
  - Alveolitis allergic [None]

NARRATIVE: CASE EVENT DATE: 20171104
